FAERS Safety Report 9167933 (Version 1)
Quarter: 2013Q1

REPORT INFORMATION
  Report Type: Other
  Country: GB (occurrence: GB)
  Receive Date: 20130318
  Receipt Date: 20130318
  Transmission Date: 20140127
  Serious: Yes (Other)
  Sender: FDA-Public Use
  Company Number: GB-PERRIGO-13GB002614

PATIENT
  Age: 38 Year
  Sex: Female
  Weight: 57.15 kg

DRUGS (1)
  1. IBUPROFEN 16028/0013 200 MG [Suspect]
     Indication: DYSMENORRHOEA
     Dosage: 2 DF, UNK
     Route: 048
     Dates: start: 2009, end: 2013

REACTIONS (1)
  - Pain [Unknown]
